FAERS Safety Report 8579071-7 (Version None)
Quarter: 2012Q3

REPORT INFORMATION
  Report Type: 
  Country: None (occurrence: None)
  Receive Date: 20120808
  Receipt Date: 20120723
  Transmission Date: 20120928
  Serious: Yes (Other)
  Sender: FDA-Public Use
  Company Number: US-ROCHE-1091323

PATIENT
  Sex: Female

DRUGS (4)
  1. RITUXAN [Suspect]
     Indication: CHRONIC LYMPHOCYTIC LEUKAEMIA
     Route: 042
     Dates: start: 20050101
  2. NEUPOGEN [Concomitant]
     Dosage: 2 DOSES EACH
  3. LUCENTIS [Suspect]
     Indication: AGE-RELATED MACULAR DEGENERATION
     Route: 050
     Dates: start: 20090701, end: 20120701
  4. BENDAMUSTINE HYDROCHLORIDE [Concomitant]
     Dosage: 2 DOSES EACH

REACTIONS (4)
  - SINUSITIS [None]
  - METAMORPHOPSIA [None]
  - LYMPHOMA [None]
  - INJECTION SITE PAIN [None]
